FAERS Safety Report 17094410 (Version 2)
Quarter: 2020Q1

REPORT INFORMATION
  Report Type: Other
  Country: IT (occurrence: IT)
  Receive Date: 20191129
  Receipt Date: 20200204
  Transmission Date: 20200409
  Serious: Yes (Other)
  Sender: FDA-Public Use
  Company Number: IT-CELLTRION INC.-2019IT026735

PATIENT

DRUGS (3)
  1. TRIMETON 10 MG/1 ML [Concomitant]
     Dosage: 1 DF, QD
     Route: 058
  2. REMSIMA [Suspect]
     Active Substance: INFLIXIMAB
     Indication: CROHN^S DISEASE
     Dosage: 440 MG, CYCLIC
     Route: 042
     Dates: start: 20180131, end: 20190902
  3. FLEBOCORTID RICHTER [Concomitant]
     Dosage: 200 MG
     Route: 042

REACTIONS (2)
  - Crohn^s disease [Unknown]
  - Drug ineffective [Unknown]

NARRATIVE: CASE EVENT DATE: 20190902
